FAERS Safety Report 9695675 (Version 2)
Quarter: 2013Q4

REPORT INFORMATION
  Report Type: Spontaneous
  Country: US (occurrence: US)
  Receive Date: 20131119
  Receipt Date: 20131122
  Transmission Date: 20140711
  Serious: No
  Sender: FDA-Public Use
  Company Number: US-VERTEX PHARMACEUTICALS INC-2013-011049

PATIENT
  Age: 50 Year
  Sex: Female
  Weight: 63 kg

DRUGS (3)
  1. INCIVEK [Suspect]
     Indication: HEPATITIS C
     Dosage: 750 MG, TID
     Route: 048
     Dates: start: 20131109
  2. RIBAVIRIN [Suspect]
     Indication: HEPATITIS C
     Dosage: 1000 MG, QD
     Route: 048
     Dates: start: 20131109
  3. PEGASYS [Suspect]
     Indication: HEPATITIS C
     Dosage: 180 ?G, QW
     Route: 058
     Dates: start: 20131109

REACTIONS (2)
  - Skin disorder [Not Recovered/Not Resolved]
  - Nausea [Not Recovered/Not Resolved]
